FAERS Safety Report 13652447 (Version 1)
Quarter: 2017Q2

REPORT INFORMATION
  Report Type: Spontaneous
  Country: US (occurrence: US)
  Receive Date: 20170614
  Receipt Date: 20170614
  Transmission Date: 20170830
  Serious: No
  Sender: FDA-Public Use
  Company Number: US-ROCHE-1346003

PATIENT
  Sex: Male
  Weight: 79.9 kg

DRUGS (4)
  1. XELODA [Suspect]
     Active Substance: CAPECITABINE
     Indication: COLON CANCER
     Route: 048
     Dates: start: 20140110
  2. ULORIC [Concomitant]
     Active Substance: FEBUXOSTAT
  3. IBUPROFEN. [Concomitant]
     Active Substance: IBUPROFEN
  4. NAPROXEN. [Concomitant]
     Active Substance: NAPROXEN

REACTIONS (4)
  - Fatigue [Unknown]
  - Headache [Unknown]
  - Glossodynia [Unknown]
  - Stomatitis [Recovered/Resolved]
